FAERS Safety Report 24058205 (Version 1)
Quarter: 2024Q3

REPORT INFORMATION
  Report Type: Report from Study
  Country: CA (occurrence: CA)
  Receive Date: 20240708
  Receipt Date: 20240708
  Transmission Date: 20241017
  Serious: Yes (Hospitalization, Other)
  Sender: ABBVIE
  Company Number: CA-ABBVIE-5827404

PATIENT
  Sex: Female

DRUGS (1)
  1. SKYRIZI [Suspect]
     Active Substance: RISANKIZUMAB-RZAA
     Indication: Psoriasis
     Route: 058
     Dates: start: 20221212, end: 202312

REACTIONS (8)
  - Liver disorder [Unknown]
  - Infection [Unknown]
  - Pneumothorax [Unknown]
  - Haemorrhage [Unknown]
  - Nasal discomfort [Unknown]
  - Coma [Unknown]
  - Gingival discomfort [Unknown]
  - Ear discomfort [Unknown]
